FAERS Safety Report 17305665 (Version 1)
Quarter: 2020Q1

REPORT INFORMATION
  Report Type: Spontaneous
  Country: US (occurrence: US)
  Receive Date: 20200123
  Receipt Date: 20200123
  Transmission Date: 20200409
  Serious: No
  Sender: FDA-Public Use
  Company Number: US-TEVA-2020-US-1172084

PATIENT
  Age: 35 Year
  Sex: Female

DRUGS (1)
  1. TESTOSTERONE. [Suspect]
     Active Substance: TESTOSTERONE
     Indication: HORMONE REPLACEMENT THERAPY
     Dosage: 4 MILLIGRAM DAILY; RECEIVING FOR 2 YEARS
     Route: 062

REACTIONS (1)
  - Sleep apnoea syndrome [Recovered/Resolved]
